FAERS Safety Report 15005362 (Version 3)
Quarter: 2020Q3

REPORT INFORMATION
  Report Type: Spontaneous
  Country: PL (occurrence: PL)
  Receive Date: 20180613
  Receipt Date: 20200730
  Transmission Date: 20201102
  Serious: Yes (Hospitalization, Other)
  Sender: FDA-Public Use
  Company Number: PL-GLAXOSMITHKLINE-PL2018008193

PATIENT
  Age: 37 Year
  Sex: Female

DRUGS (36)
  1. ALFACALCIDOL [Suspect]
     Active Substance: ALFACALCIDOL
     Indication: PRODUCT USED FOR UNKNOWN INDICATION
     Dosage: 0.25 ?G, UNK
     Route: 065
  2. TORASEMIDE [Suspect]
     Active Substance: TORSEMIDE
     Indication: HYPERTENSION
     Dosage: 2.5 MG, QD
     Route: 016
  3. TORASEMIDE [Suspect]
     Active Substance: TORSEMIDE
     Dosage: 2.5 MG,UNK
     Route: 016
  4. IRON DEXTRAN [Suspect]
     Active Substance: IRON DEXTRAN
     Dosage: UNK
     Route: 042
     Dates: start: 201408
  5. ERYTHROPOIETIN [Suspect]
     Active Substance: ERYTHROPOIETIN
     Dosage: 4000 IU,QW
     Route: 058
     Dates: start: 20150801
  6. SIMVASTATIN. [Suspect]
     Active Substance: SIMVASTATIN
     Indication: HYPERCHOLESTEROLAEMIA
     Dosage: 20 MG, UNK
     Route: 065
     Dates: end: 2015
  7. EPOETIN BETA [Suspect]
     Active Substance: ERYTHROPOIETIN
     Indication: PRODUCT USED FOR UNKNOWN INDICATION
     Dosage: 2000 DF, WE
     Route: 058
  8. EPOETIN BETA [Suspect]
     Active Substance: ERYTHROPOIETIN
     Dosage: 2000 DF, WE
     Route: 058
  9. IRON DEXTRAN [Suspect]
     Active Substance: IRON DEXTRAN
     Indication: PRODUCT USED FOR UNKNOWN INDICATION
     Dosage: 100 MG, QW
     Route: 042
  10. HEPARIN SODIUM. [Suspect]
     Active Substance: HEPARIN SODIUM
     Indication: ANTICOAGULANT THERAPY
     Dosage: UNK
     Route: 065
  11. SPIRAMYCIN [Suspect]
     Active Substance: SPIRAMYCIN
     Indication: CYSTITIS
  12. EPOETIN BETA [Suspect]
     Active Substance: ERYTHROPOIETIN
     Dosage: 4000 IU, WE
     Route: 058
     Dates: start: 201508
  13. EPOETIN BETA [Suspect]
     Active Substance: ERYTHROPOIETIN
     Dosage: UNK UNK, WE
     Route: 058
  14. FERINJECT [Suspect]
     Active Substance: FERRIC CARBOXYMALTOSE
     Indication: PRODUCT USED FOR UNKNOWN INDICATION
     Dosage: 100 MG, UNK
     Route: 042
     Dates: start: 201408
  15. SACCHARATED IRON OXIDE [Suspect]
     Active Substance: IRON SUCROSE
     Indication: PRODUCT USED FOR UNKNOWN INDICATION
     Dosage: 100 MG, UNK
     Route: 042
  16. ACETYLSALICYLIC ACID [Suspect]
     Active Substance: ASPIRIN
     Indication: PROPHYLAXIS
     Dosage: 75 MG,UNK
     Route: 048
     Dates: start: 20150301
  17. METHYLDOPA. [Suspect]
     Active Substance: METHYLDOPA
     Indication: HYPERTENSION
     Dosage: 1 DF, QD
     Route: 016
     Dates: start: 20150301
  18. EPOETIN BETA [Suspect]
     Active Substance: ERYTHROPOIETIN
     Dosage: 2000 DF
     Route: 058
  19. IRON DEXTRAN [Suspect]
     Active Substance: IRON DEXTRAN
     Dosage: 100 UNK
     Route: 048
     Dates: start: 201408
  20. VITAMIN D3 [Concomitant]
     Active Substance: CHOLECALCIFEROL
     Indication: PRODUCT USED FOR UNKNOWN INDICATION
     Dosage: UNK
     Route: 065
  21. RISEDRONIC ACID [Concomitant]
     Active Substance: RISEDRONIC ACID
     Indication: PRODUCT USED FOR UNKNOWN INDICATION
     Dosage: UNK
     Route: 065
  22. LEVOTHYROXINE SODIUM. [Suspect]
     Active Substance: LEVOTHYROXINE SODIUM
     Indication: HYPOTHYROIDISM
     Dosage: 25 UG,QD
     Route: 065
     Dates: start: 20150501
  23. SPIRAMYCIN [Suspect]
     Active Substance: SPIRAMYCIN
     Indication: CYSTITIS
     Dosage: UNK
     Route: 065
  24. IRON DEXTRAN [Suspect]
     Active Substance: IRON DEXTRAN
     Dosage: UNK
     Route: 048
     Dates: start: 201503
  25. ERYTHROPOIETIN [Suspect]
     Active Substance: ERYTHROPOIETIN
     Indication: PRODUCT USED FOR UNKNOWN INDICATION
     Dosage: 2000 IU,QW
     Route: 058
  26. COLECALCIFEROL [Concomitant]
     Active Substance: CHOLECALCIFEROL
     Indication: PRODUCT USED FOR UNKNOWN INDICATION
     Dosage: UNK
     Route: 065
  27. ASCORBIC ACID. [Concomitant]
     Active Substance: ASCORBIC ACID
     Indication: PRODUCT USED FOR UNKNOWN INDICATION
     Dosage: UNK
     Route: 048
     Dates: start: 201503
  28. SIMVASTATIN. [Suspect]
     Active Substance: SIMVASTATIN
     Dosage: 20 MG,UNK
     Route: 065
  29. CEFUROXIME AXETIL. [Suspect]
     Active Substance: CEFUROXIME AXETIL
     Indication: CYSTITIS
     Dosage: UNK
     Route: 065
     Dates: start: 20150501
  30. ALFACALCIDOL [Suspect]
     Active Substance: ALFACALCIDOL
     Dosage: 0.25 ?G, UNK
     Route: 065
  31. LEVOTHYROXINE SODIUM. [Suspect]
     Active Substance: LEVOTHYROXINE SODIUM
     Dosage: 25 UG,QD
     Route: 065
     Dates: start: 201505
  32. FOLIC ACID. [Suspect]
     Active Substance: FOLIC ACID
     Indication: PRODUCT USED FOR UNKNOWN INDICATION
     Dosage: 15 MG, QD
     Route: 042
     Dates: start: 20150301
  33. SPIRAMYCIN [Suspect]
     Active Substance: SPIRAMYCIN
     Indication: TOXOPLASMOSIS
     Dosage: UNK
     Route: 016
     Dates: start: 20150501
  34. EPOETIN BETA [Suspect]
     Active Substance: ERYTHROPOIETIN
     Dosage: UNK
     Route: 065
  35. MALTOFER (IRON POLYMALTOSE) [Suspect]
     Active Substance: IRON POLYMALTOSE
     Indication: PRODUCT USED FOR UNKNOWN INDICATION
     Dosage: 100 MG, WE
     Route: 048
  36. MALTOFER (IRON POLYMALTOSE) [Suspect]
     Active Substance: IRON POLYMALTOSE
     Dosage: 100 MG
     Route: 065
     Dates: start: 201503

REACTIONS (13)
  - Off label use [Unknown]
  - Premature delivery [Unknown]
  - Oedema peripheral [Unknown]
  - Exposure during pregnancy [Unknown]
  - Hypothyroidism [Unknown]
  - Toxoplasmosis [Unknown]
  - Premature rupture of membranes [Unknown]
  - Contraindicated product administered [Unknown]
  - Haematocrit decreased [Unknown]
  - Live birth [Unknown]
  - Haemoglobin decreased [Unknown]
  - Blood albumin decreased [Unknown]
  - Cystitis [Unknown]

NARRATIVE: CASE EVENT DATE: 201505
